FAERS Safety Report 6905704-4 (Version None)
Quarter: 2010Q3

REPORT INFORMATION
  Report Type: 
  Country: None (occurrence: None)
  Receive Date: 20100708
  Receipt Date: 20090421
  Transmission Date: 20110219
  Serious: Yes (Other)
  Sender: FDA-Public Use
  Company Number: 200904073

PATIENT
  Age: 33 Year
  Sex: Female
  Weight: 62.6 kg

DRUGS (6)
  1. CHANTIX [Suspect]
     Indication: SMOKING CESSATION THERAPY
     Dosage: 1 MG, 2X/DAY
     Dates: start: 20090415, end: 20090401
  2. SPIRIVA [Concomitant]
  3. BUPROPION HCL [Concomitant]
  4. DIAZEPAM [Concomitant]
  5. VERAPAMIL [Concomitant]
  6. ALBUTEROL [Concomitant]

REACTIONS (7)
  - ANGER [None]
  - FEELING ABNORMAL [None]
  - GASTRITIS [None]
  - HYPOPHAGIA [None]
  - IRRITABILITY [None]
  - SCREAMING [None]
  - SUICIDAL IDEATION [None]
